FAERS Safety Report 12961163 (Version 1)
Quarter: 2016Q4

REPORT INFORMATION
  Report Type: Spontaneous
  Country: US (occurrence: US)
  Receive Date: 20161121
  Receipt Date: 20161121
  Transmission Date: 20170207
  Serious: No
  Sender: FDA-Public Use
  Company Number: US-PFIZER INC-2016463514

PATIENT
  Age: 70 Year
  Sex: Male
  Weight: 70.75 kg

DRUGS (10)
  1. VFEND [Suspect]
     Active Substance: VORICONAZOLE
     Indication: PNEUMONIA FUNGAL
     Dosage: TAKE 1.5 TABS(300 MG), EVERY 12 HOURS
     Route: 048
  2. VFEND [Suspect]
     Active Substance: VORICONAZOLE
     Dosage: 400 MG, 2X/DAY
     Dates: start: 20161109
  3. URSODIOL. [Concomitant]
     Active Substance: URSODIOL
     Dosage: UNK
  4. CANCIDAS [Concomitant]
     Active Substance: CASPOFUNGIN ACETATE
     Dosage: UNK
  5. LEXAPRO [Concomitant]
     Active Substance: ESCITALOPRAM OXALATE
     Dosage: UNK
  6. TAMSULOSIN [Concomitant]
     Active Substance: TAMSULOSIN
     Dosage: UNK
  7. ACYCLOVIR. [Concomitant]
     Active Substance: ACYCLOVIR
     Dosage: UNK
  8. PROTONIX [Concomitant]
     Active Substance: PANTOPRAZOLE SODIUM
     Dosage: UNK
  9. VFEND [Suspect]
     Active Substance: VORICONAZOLE
     Dosage: 400 MG, IN THE MORNING (2 TABLETS OF 200MG),300 MG, IN THE EVENING (200 MG 1 PILL AND 50 MG 2 PILLS)
  10. TACROLIMUS. [Concomitant]
     Active Substance: TACROLIMUS
     Dosage: UNK

REACTIONS (3)
  - Incorrect dose administered [Unknown]
  - Product use issue [Unknown]
  - Weight increased [Unknown]
